FAERS Safety Report 5114944-9 (Version None)
Quarter: 2006Q3

REPORT INFORMATION
  Report Type: 
  Country: None (occurrence: None)
  Receive Date: 20060925
  Receipt Date: 20060925
  Transmission Date: 20061208
  Serious: No
  Sender: FDA-Public Use
  Company Number: None

PATIENT
  Sex: Female

DRUGS (1)
  1. CLONAZEPAM [Suspect]
     Dosage: 0.5MG  1QD   PO
     Route: 048
     Dates: start: 20060914, end: 20060922

REACTIONS (3)
  - DRUG INEFFECTIVE [None]
  - FORMICATION [None]
  - PHARMACEUTICAL PRODUCT COMPLAINT [None]
